FAERS Safety Report 22761843 (Version 3)
Quarter: 2023Q4

REPORT INFORMATION
  Report Type: Spontaneous
  Country: US (occurrence: US)
  Receive Date: 20230728
  Receipt Date: 20231031
  Transmission Date: 20240110
  Serious: Yes (Other)
  Sender: FDA-Public Use
  Company Number: US-BAYER-2023A103262

PATIENT
  Age: 28 Year
  Sex: Male

DRUGS (1)
  1. KOVALTRY [Suspect]
     Active Substance: ANTIHEMOPHILIC FACTOR, HUMAN RECOMBINANT
     Indication: Factor VIII deficiency
     Dosage: 3500 IU, BIW
     Route: 042
     Dates: start: 202305

REACTIONS (2)
  - Haemarthrosis [None]
  - Gait disturbance [None]

NARRATIVE: CASE EVENT DATE: 20230707
